FAERS Safety Report 25688610 (Version 1)
Quarter: 2025Q3

REPORT INFORMATION
  Report Type: Spontaneous
  Country: US (occurrence: US)
  Receive Date: 20250818
  Receipt Date: 20250818
  Transmission Date: 20251021
  Serious: Yes (Disabling, Other)
  Sender: BECTON DICKINSON
  Company Number: None

PATIENT

DRUGS (1)
  1. CHLORHEXIDINE GLUCONATE\ISOPROPYL ALCOHOL [Suspect]
     Active Substance: CHLORHEXIDINE GLUCONATE\ISOPROPYL ALCOHOL
     Indication: Infection prophylaxis
     Route: 065

REACTIONS (5)
  - Pupil fixed [Recovering/Resolving]
  - Corneal decompensation [Recovering/Resolving]
  - Corneal oedema [Recovering/Resolving]
  - Cataract subcapsular [Recovering/Resolving]
  - Accidental exposure to product [Recovering/Resolving]
